FAERS Safety Report 9360964 (Version 1)
Quarter: 2013Q2

REPORT INFORMATION
  Report Type: Spontaneous
  Country: NL (occurrence: NL)
  Receive Date: 20130621
  Receipt Date: 20130621
  Transmission Date: 20140414
  Serious: Yes (Other)
  Sender: FDA-Public Use
  Company Number: NL-PFIZER INC-2013183242

PATIENT
  Age: 69 Year
  Sex: Male
  Weight: 85 kg

DRUGS (5)
  1. ATORVASTATIN CALCIUM [Suspect]
     Indication: SURGERY
     Dosage: 30 MG, DAILY
     Dates: start: 20120505, end: 20120915
  2. ATORVASTATIN CALCIUM [Suspect]
     Indication: AORTIC ANEURYSM
  3. VENTOLIN [Concomitant]
     Dosage: UNK
  4. SPIRIVA [Concomitant]
     Dosage: UNK
  5. SERETIDE [Concomitant]
     Dosage: UNK

REACTIONS (4)
  - Pneumonia [Unknown]
  - Pain [Unknown]
  - Oedema peripheral [Unknown]
  - Off label use [Unknown]
